FAERS Safety Report 8909217 (Version 1)
Quarter: 2012Q4

REPORT INFORMATION
  Report Type: Spontaneous
  Country: US (occurrence: None)
  Receive Date: 20121113
  Receipt Date: 20121113
  Transmission Date: 20130627
  Serious: Yes (Hospitalization)
  Sender: FDA-Public Use
  Company Number: None

PATIENT
  Age: 56 Year
  Sex: Male
  Weight: 103.3 kg

DRUGS (2)
  1. SPIRONOLACTONE [Suspect]
     Indication: CONGESTIVE HEART FAILURE
     Dosage: 25 ML BID PO
     Route: 048
     Dates: start: 20110729, end: 20121006
  2. RAMIPRIL [Suspect]
     Indication: CONGESTIVE HEART FAILURE
     Dosage: 1.25 MG BID PO
     Route: 048
     Dates: start: 20120723, end: 20121006

REACTIONS (2)
  - Asthenia [None]
  - Hyperkalaemia [None]
